FAERS Safety Report 9889220 (Version 1)
Quarter: 2014Q1

REPORT INFORMATION
  Report Type: Spontaneous
  Country: US (occurrence: None)
  Receive Date: 20140207
  Receipt Date: 20140207
  Transmission Date: 20141002
  Serious: Yes (Life-Threatening, Hospitalization)
  Sender: FDA-Public Use
  Company Number: 2014P1000751

PATIENT
  Age: 50 Year
  Sex: Male

DRUGS (3)
  1. AMLODIPINE [Suspect]
     Dosage: 500 MG; X1; PO
     Route: 048
  2. HYDROCHLOROTHIAZIDE [Suspect]
     Dosage: 625 MG; X1; PO
     Route: 048
  3. LISINOPRIL [Suspect]
     Dosage: 1000 MG; X1; PO
     Route: 048

REACTIONS (17)
  - Suicide attempt [None]
  - Tachycardia [None]
  - Hypotension [None]
  - Depressed level of consciousness [None]
  - Toxicity to various agents [None]
  - Shock [None]
  - Respiratory failure [None]
  - Hypokalaemia [None]
  - Hypophosphataemia [None]
  - Renal failure [None]
  - Hypoxia [None]
  - Ejection fraction decreased [None]
  - Continuous haemodiafiltration [None]
  - Staphylococcal bacteraemia [None]
  - Pericardial effusion [None]
  - Intentional overdose [None]
  - Non-cardiogenic pulmonary oedema [None]
